FAERS Safety Report 25382397 (Version 1)
Quarter: 2025Q2

REPORT INFORMATION
  Report Type: Spontaneous
  Country: US (occurrence: US)
  Receive Date: 20250601
  Receipt Date: 20250601
  Transmission Date: 20250717
  Serious: No
  Sender: SANOFI AVENTIS
  Company Number: US-SA-2025SA155112

PATIENT
  Sex: Female

DRUGS (6)
  1. DUPIXENT [Suspect]
     Active Substance: DUPILUMAB
     Indication: Dermatitis atopic
     Dosage: 300 MG, QOW
     Route: 058
     Dates: start: 202308
  2. AZITHROMYCIN [Concomitant]
     Active Substance: AZITHROMYCIN
  3. GONAL-F [Concomitant]
     Active Substance: FOLLITROPIN
  4. MENOPUR [Concomitant]
     Active Substance: FOLLITROPIN\LUTEINIZING HORMONE
  5. MEDROXYPROGESTERONE ACETATE [Concomitant]
     Active Substance: MEDROXYPROGESTERONE ACETATE
  6. LEUPROLIDE ACETATE [Concomitant]
     Active Substance: LEUPROLIDE ACETATE

REACTIONS (2)
  - Dermatitis atopic [Unknown]
  - Skin exfoliation [Unknown]
